FAERS Safety Report 9353083 (Version 1)
Quarter: 2013Q2

REPORT INFORMATION
  Report Type: Spontaneous
  Country: US (occurrence: None)
  Receive Date: 20130617
  Receipt Date: 20130617
  Transmission Date: 20140414
  Serious: Yes (Other)
  Sender: FDA-Public Use
  Company Number: None

PATIENT
  Age: 90 Year
  Sex: Female
  Weight: 61.24 kg

DRUGS (4)
  1. ENOXAPARIN SODIUM [Suspect]
     Indication: ANEURYSM
     Dosage: INJECTION, 80MG/0.8ML,DAILY, INJECTION.
     Dates: start: 20130423, end: 20130529
  2. ENOXAPARIN SODIUM [Suspect]
     Indication: PROPHYLAXIS
     Dosage: INJECTION, 80MG/0.8ML,DAILY, INJECTION.
     Dates: start: 20130423, end: 20130529
  3. METROPROLOL [Concomitant]
  4. HYDROCHLOROTHRAZIDE [Concomitant]

REACTIONS (5)
  - Local swelling [None]
  - Joint swelling [None]
  - Local swelling [None]
  - Dyspnoea [None]
  - Gait disturbance [None]
